FAERS Safety Report 10420517 (Version 1)
Quarter: 2014Q2

REPORT INFORMATION
  Report Type: Spontaneous
  Country: US (occurrence: None)
  Receive Date: 20140618
  Receipt Date: 20140618
  Transmission Date: 20141212
  Serious: Yes (Hospitalization, Other)
  Sender: FDA-Public Use
  Company Number: 113075

PATIENT
  Sex: Male
  Weight: 115.6 kg

DRUGS (7)
  1. LACOSAMIDE [Suspect]
     Indication: EPILEPSY
     Route: 048
     Dates: start: 20140204
  2. KEPPRA [Suspect]
     Route: 048
     Dates: end: 20140204
  3. LISINOPRIL [Concomitant]
  4. METFORMIN [Concomitant]
  5. DILANTIN [Concomitant]
  6. CELEXA [Concomitant]
  7. INEXIUM [Concomitant]

REACTIONS (7)
  - Generalised tonic-clonic seizure [None]
  - Convulsion [None]
  - Anger [None]
  - Tremor [None]
  - Balance disorder [None]
  - Depressed mood [None]
  - Overdose [None]
